FAERS Safety Report 5047220-3 (Version None)
Quarter: 2006Q3

REPORT INFORMATION
  Report Type: 
  Country: None (occurrence: None)
  Receive Date: 20060703
  Receipt Date: 20060622
  Transmission Date: 20061208
  Serious: Yes (Life-Threatening, Hospitalization, Other)
  Sender: FDA-Public Use
  Company Number: 2006-02-0235

PATIENT
  Age: 49 Year
  Sex: Male
  Weight: 75 kg

DRUGS (3)
  1. PEG-INTRON [Suspect]
     Indication: HEPATITIS C
     Dosage: 100 MCG QW SUBCUTANEOUS
     Route: 058
     Dates: start: 20050301, end: 20060112
  2. REBETOL [Suspect]
     Indication: HEPATITIS C
     Dosage: 800 MG ORAL
     Route: 048
     Dates: start: 20050301, end: 20060119
  3. URSOO [Concomitant]

REACTIONS (22)
  - ASCITES [None]
  - BLOOD URINE PRESENT [None]
  - COUGH [None]
  - DECREASED APPETITE [None]
  - HAEMATOCRIT DECREASED [None]
  - HAEMOGLOBIN DECREASED [None]
  - HEPATIC CIRRHOSIS [None]
  - HYPERTENSION [None]
  - HYPOALBUMINAEMIA [None]
  - HYPOVOLAEMIA [None]
  - INFECTION [None]
  - INTERSTITIAL LUNG DISEASE [None]
  - LYMPHOID TISSUE HYPERPLASIA [None]
  - LYMPHOMA [None]
  - MUSCULOSKELETAL PAIN [None]
  - OEDEMA [None]
  - PLEURAL EFFUSION [None]
  - PROTEINURIA [None]
  - PYREXIA [None]
  - STREPTOCOCCAL SEROLOGY POSITIVE [None]
  - SWELLING [None]
  - THROMBOCYTOPENIA [None]
